FAERS Safety Report 25670653 (Version 1)
Quarter: 2025Q3

REPORT INFORMATION
  Report Type: Spontaneous
  Country: US (occurrence: None)
  Receive Date: 20250812
  Receipt Date: 20250812
  Transmission Date: 20251021
  Serious: Yes (Death)
  Sender: FDA-CTU
  Company Number: None

PATIENT
  Age: 69 Year
  Sex: Male
  Weight: 80.8 kg

DRUGS (11)
  1. CABAZITAXEL [Suspect]
     Active Substance: CABAZITAXEL
     Dates: end: 20250603
  2. PREDNISONE [Suspect]
     Active Substance: PREDNISONE
     Dates: end: 20250702
  3. OLANZAPINE [Concomitant]
     Active Substance: OLANZAPINE
  4. FAMOTIDINE [Concomitant]
     Active Substance: FAMOTIDINE
  5. GABAPENTIN [Concomitant]
     Active Substance: GABAPENTIN
  6. HEPARIN [Concomitant]
     Active Substance: HEPARIN SODIUM
  7. ONDANSETRON [Concomitant]
     Active Substance: ONDANSETRON
  8. PANTOPRAZOLE [Concomitant]
     Active Substance: PANTOPRAZOLE
  9. POLYETHYLENE GLYCOL [Concomitant]
     Active Substance: POLYETHYLENE GLYCOL
  10. prochloperazine [Concomitant]
  11. TRAMADOL [Concomitant]
     Active Substance: TRAMADOL

REACTIONS (2)
  - Multiple organ dysfunction syndrome [None]
  - Hepatic failure [None]

NARRATIVE: CASE EVENT DATE: 20250704
